FAERS Safety Report 7688022-9 (Version None)
Quarter: 2011Q3

REPORT INFORMATION
  Report Type: 
  Country: None (occurrence: None)
  Receive Date: 20110817
  Receipt Date: 20110812
  Transmission Date: 20111222
  Serious: Yes (Hospitalization, Other)
  Sender: FDA-Public Use
  Company Number: US-PFIZER INC-2011128924

PATIENT
  Sex: Female

DRUGS (5)
  1. HYDROCODONE [Concomitant]
     Indication: PAIN
     Dosage: UNK
     Dates: start: 20060101, end: 20110101
  2. DARVOCET [Concomitant]
     Indication: PAIN
     Dosage: UNK
     Dates: start: 20060101, end: 20110101
  3. FLEXERIL [Concomitant]
     Indication: MUSCLE RELAXANT THERAPY
     Dosage: UNK
     Dates: start: 20060101
  4. NORGESTREL/ETHINYL ESTRADIOL [Concomitant]
     Indication: ENDOMETRIOSIS
     Dosage: UNK
     Dates: start: 20070101
  5. CHANTIX [Suspect]
     Indication: SMOKING CESSATION THERAPY
     Dosage: 0.5MG/1MG
     Dates: start: 20080701, end: 20080801

REACTIONS (5)
  - ABNORMAL BEHAVIOUR [None]
  - ANXIETY [None]
  - DEPRESSION [None]
  - SUICIDE ATTEMPT [None]
  - PSYCHOTIC DISORDER [None]
